FAERS Safety Report 25972061 (Version 2)
Quarter: 2025Q4

REPORT INFORMATION
  Report Type: Spontaneous
  Country: JP (occurrence: JP)
  Receive Date: 20251029
  Receipt Date: 20251210
  Transmission Date: 20260117
  Serious: Yes (Other)
  Sender: SUNOVION
  Company Number: JP-SMPA-2025SPA014034

PATIENT
  Sex: Female

DRUGS (1)
  1. RELUGOLIX [Suspect]
     Active Substance: RELUGOLIX
     Indication: Retained placenta or membranes
     Dosage: 40 MG
     Route: 048
     Dates: start: 20250821, end: 20250908

REACTIONS (2)
  - Uterine haemorrhage [Recovered/Resolved]
  - Off label use [Unknown]
